FAERS Safety Report 7349817-4 (Version None)
Quarter: 2011Q1

REPORT INFORMATION
  Report Type: 
  Country: None (occurrence: None)
  Receive Date: 20110223
  Receipt Date: 20110217
  Transmission Date: 20110831
  Serious: Yes (Other)
  Sender: FDA-Public Use
  Company Number: DKLU1067468

PATIENT
  Sex: Female

DRUGS (3)
  1. LISINOPRIL (LISINOPRIL)(5 MG) [Concomitant]
  2. PANHEMATIN [Suspect]
     Indication: PORPHYRIA
     Dosage: ONCE/DAY X 5 DAYS EVERY 3 WEEKS, INTRAVENOUS (NOT OTHERWISE SPECIFIED)
     Route: 042
     Dates: start: 20101101
  3. SYNTHROID [Concomitant]

REACTIONS (4)
  - SENSATION OF PRESSURE [None]
  - BLOOD PRESSURE INCREASED [None]
  - NIPPLE PAIN [None]
  - HEADACHE [None]
